FAERS Safety Report 24574207 (Version 2)
Quarter: 2024Q4

REPORT INFORMATION
  Report Type: Spontaneous
  Country: DE (occurrence: DE)
  Receive Date: 20241104
  Receipt Date: 20241112
  Transmission Date: 20250115
  Serious: Yes (Hospitalization)
  Sender: DR REDDYS
  Company Number: None

PATIENT
  Age: 8 Year
  Sex: Female
  Weight: 29 kg

DRUGS (2)
  1. LEVETIRACETAM [Suspect]
     Active Substance: LEVETIRACETAM
     Indication: Generalised tonic-clonic seizure
     Dosage: 100MG/ML  INCREASED TO 2X1000MG  ASTATIC PHASES OCCURRED AFTER THE DOSE WAS INCREASED, DUE TO LACK O
     Route: 048
     Dates: start: 2024
  2. SULTHIAME [Concomitant]
     Active Substance: SULTHIAME
     Indication: Generalised tonic-clonic seizure

REACTIONS (2)
  - Electroencephalogram abnormal [Recovering/Resolving]
  - Anticonvulsant drug level increased [Unknown]

NARRATIVE: CASE EVENT DATE: 20240101
